FAERS Safety Report 8645237 (Version 4)
Quarter: 2012Q4

REPORT INFORMATION
  Report Type: 
  Country: DE (occurrence: DE)
  Receive Date: 20120702
  Receipt Date: 20121221
  Transmission Date: 20130627
  Serious: Yes (Death)
  Sender: FDA-Public Use
  Company Number: DE-SHIRE-ALL1-2012-03152

PATIENT
  Age: 23 None
  Sex: Male
  Weight: 80 kg

DRUGS (2)
  1. MEZAVANT [Suspect]
     Indication: CROHN^S DISEASE
     Dosage: 2400 mg, 1x/day:qd
     Route: 048
     Dates: start: 201206
  2. BUDENOFALK [Concomitant]
     Indication: CROHN^S DISEASE
     Dosage: 3 mg, 1x/day:qd
     Route: 065
     Dates: start: 201206

REACTIONS (2)
  - Pulmonary haemorrhage [Fatal]
  - Off label use [Not Recovered/Not Resolved]
